FAERS Safety Report 4702661-6 (Version None)
Quarter: 2005Q2

REPORT INFORMATION
  Report Type: 
  Country: None (occurrence: None)
  Receive Date: 20050629
  Receipt Date: 20041013
  Transmission Date: 20051028
  Serious: No
  Sender: FDA-Public Use
  Company Number: US-GLAXOSMITHKLINE-A0529992A

PATIENT
  Age: 55 Year
  Sex: Female
  Weight: 63.6 kg

DRUGS (1)
  1. ZYBAN [Suspect]
     Route: 048

REACTIONS (1)
  - AGITATION [None]
